FAERS Safety Report 16010457 (Version 1)
Quarter: 2019Q1

REPORT INFORMATION
  Report Type: Other
  Country: GR (occurrence: GR)
  Receive Date: 20190225
  Receipt Date: 20190225
  Transmission Date: 20190418
  Serious: Yes (Life-Threatening, Hospitalization, Other)
  Sender: FDA-Public Use
  Company Number: GR-APOTEX-2019AP008104

PATIENT
  Age: 43 Year
  Sex: Male

DRUGS (5)
  1. OLANZAPINE. [Suspect]
     Active Substance: OLANZAPINE
     Indication: DEPRESSION
     Dosage: UNK
     Route: 065
  2. MIDAZOLAM [Interacting]
     Active Substance: MIDAZOLAM HYDROCHLORIDE
     Indication: PRODUCT USED FOR UNKNOWN INDICATION
     Dosage: UNK
     Route: 065
  3. TRIHEXYPHENIDYL [Interacting]
     Active Substance: TRIHEXYPHENIDYL
     Indication: PRODUCT USED FOR UNKNOWN INDICATION
     Dosage: UNK
     Route: 065
  4. ALPRAZOLAM. [Interacting]
     Active Substance: ALPRAZOLAM
     Indication: SCHIZOPHRENIA
     Dosage: UNK
     Route: 065
  5. METHADONE [Interacting]
     Active Substance: METHADONE HYDROCHLORIDE
     Indication: DRUG DEPENDENCE
     Dosage: 20 MG, QD
     Route: 065

REACTIONS (12)
  - Overdose [Recovered/Resolved]
  - Coma [Recovered/Resolved]
  - Obstruction [Recovered/Resolved]
  - Toxicity to various agents [Recovered/Resolved]
  - Gastritis erosive [Recovering/Resolving]
  - Platelet count abnormal [Recovered/Resolved]
  - Drug interaction [Recovered/Resolved]
  - Impaired gastric emptying [Recovered/Resolved]
  - Respiratory failure [Recovered/Resolved]
  - Gamma-glutamyltransferase increased [Recovered/Resolved]
  - Aspiration [Recovered/Resolved]
  - Bezoar [Recovered/Resolved]
